FAERS Safety Report 4757604-6 (Version None)
Quarter: 2005Q3

REPORT INFORMATION
  Report Type: 
  Country: None (occurrence: None)
  Receive Date: 20050830
  Receipt Date: 20050816
  Transmission Date: 20060218
  Serious: Yes (Hospitalization)
  Sender: FDA-Public Use
  Company Number: DSA_26892_2005

PATIENT
  Age: 87 Year
  Sex: Male

DRUGS (8)
  1. ENALAPRIL MALEATE [Suspect]
     Indication: HYPERTENSION
     Dosage: 20 MG Q DAY PO
     Route: 048
  2. CIFENLINE SUCCINATE [Suspect]
     Indication: ARRHYTHMIA
     Dosage: 130 MG Q DAY PO
     Route: 048
     Dates: start: 19900101, end: 20050622
  3. ALBUTEROL SULFATE [Concomitant]
  4. BROMAZEPAM [Concomitant]
  5. FENOFIBRATE [Concomitant]
  6. FENOTEROL HYDROBROMIDE + IPRATROPIUM B [Concomitant]
  7. FLUTICASONE PROPIONATE [Concomitant]
  8. PREDNISONE TAB [Concomitant]

REACTIONS (1)
  - HYPOGLYCAEMIA [None]
